FAERS Safety Report 23303056 (Version 1)
Quarter: 2023Q4

REPORT INFORMATION
  Report Type: Spontaneous
  Country: CN (occurrence: CN)
  Receive Date: 20231215
  Receipt Date: 20231215
  Transmission Date: 20240110
  Serious: Yes (Other)
  Sender: FDA-Public Use
  Company Number: CN-SUN PHARMACEUTICAL INDUSTRIES LTD-2023R1-423692

PATIENT
  Age: 33 Year

DRUGS (8)
  1. LEVETIRACETAM [Suspect]
     Active Substance: LEVETIRACETAM
     Indication: Chemical poisoning
     Dosage: 1 GRAM, BID
  2. LEVETIRACETAM [Suspect]
     Active Substance: LEVETIRACETAM
     Indication: Anaesthesia
  3. MIDAZOLAM [Concomitant]
     Active Substance: MIDAZOLAM
     Indication: Chemical poisoning
     Dosage: 20MG/H
     Route: 042
  4. MIDAZOLAM [Concomitant]
     Active Substance: MIDAZOLAM
     Indication: Anaesthesia
  5. PROPOFOL [Suspect]
     Active Substance: PROPOFOL
     Indication: Chemical poisoning
     Dosage: 0.15G/H
     Route: 042
  6. PROPOFOL [Suspect]
     Active Substance: PROPOFOL
     Indication: Anaesthesia
  7. OXCARBAZEPINE [Concomitant]
     Active Substance: OXCARBAZEPINE
     Indication: Chemical poisoning
     Dosage: UNK
  8. VALPROATE SODIUM [Concomitant]
     Active Substance: VALPROATE SODIUM
     Indication: Chemical poisoning
     Dosage: 1.2 GRAM, BID

REACTIONS (4)
  - New onset refractory status epilepticus [Recovered/Resolved]
  - Tonic convulsion [Recovered/Resolved]
  - Hypotension [Unknown]
  - Respiratory depression [Unknown]
